FAERS Safety Report 23987707 (Version 1)
Quarter: 2024Q2

REPORT INFORMATION
  Report Type: Spontaneous
  Country: US (occurrence: US)
  Receive Date: 20240619
  Receipt Date: 20240619
  Transmission Date: 20240716
  Serious: No
  Sender: FDA-Public Use
  Company Number: US-NAARI PTE LIMITED-2024NP000031

PATIENT
  Sex: Female
  Weight: 61.224 kg

DRUGS (2)
  1. LEVONORGESTREL [Suspect]
     Active Substance: LEVONORGESTREL
     Indication: Post coital contraception
     Dosage: 1.5 MILLIGRAM
     Route: 048
     Dates: start: 20240221, end: 20240221
  2. XANAX [Concomitant]
     Active Substance: ALPRAZOLAM
     Indication: Anxiety
     Dosage: UNK, 1 TABLET ONCE A DAY, SINCE 8 YEARS
     Route: 065

REACTIONS (1)
  - Inappropriate schedule of product administration [Unknown]
